FAERS Safety Report 7684767-5 (Version None)
Quarter: 2011Q3

REPORT INFORMATION
  Report Type: 
  Country: None (occurrence: None)
  Receive Date: 20110810
  Receipt Date: 20110727
  Transmission Date: 20111222
  Serious: Yes (Other)
  Sender: FDA-Public Use
  Company Number: US-2011-10554

PATIENT
  Sex: Female

DRUGS (2)
  1. BUSULFEX [Suspect]
     Indication: BONE MARROW TRANSPLANT
     Dosage: 12.8 MG/KG, DAILY DOSE
  2. CYCLOPHOSPHAMIDE [Concomitant]

REACTIONS (1)
  - PREMATURE MENOPAUSE [None]
